FAERS Safety Report 10198707 (Version 1)
Quarter: 2014Q2

REPORT INFORMATION
  Report Type: Spontaneous
  Country: US (occurrence: US)
  Receive Date: 20140527
  Receipt Date: 20140527
  Transmission Date: 20141212
  Serious: No
  Sender: FDA-Public Use
  Company Number: US-NOVEN-13US007455

PATIENT
  Sex: 0

DRUGS (1)
  1. DAYTRANA [Suspect]
     Indication: PRODUCT USED FOR UNKNOWN INDICATION
     Route: 062

REACTIONS (5)
  - Dermatitis contact [Unknown]
  - Application site erythema [Unknown]
  - Application site vesicles [Unknown]
  - Off label use [Unknown]
  - Drug prescribing error [Unknown]
